FAERS Safety Report 13340013 (Version 1)
Quarter: 2017Q1

REPORT INFORMATION
  Report Type: Spontaneous
  Country: JP (occurrence: JP)
  Receive Date: 20170316
  Receipt Date: 20170316
  Transmission Date: 20170428
  Serious: Yes (Hospitalization)
  Sender: FDA-Public Use
  Company Number: JP-CONCORDIA PHARMACEUTICALS INC.-E2B_00008068

PATIENT
  Age: 61 Year
  Sex: Male

DRUGS (17)
  1. ALEVIATIN [Interacting]
     Active Substance: PHENYTOIN SODIUM
     Indication: EPILEPSY
     Route: 048
     Dates: start: 2013, end: 20161127
  2. ZONISAMIDE. [Interacting]
     Active Substance: ZONISAMIDE
     Route: 065
     Dates: start: 20161128
  3. PHENOBAL [Concomitant]
     Active Substance: PHENOBARBITAL
     Indication: PRODUCT USED FOR UNKNOWN INDICATION
     Route: 048
     Dates: end: 20161127
  4. GABAPEN [Concomitant]
     Active Substance: GABAPENTIN
     Route: 065
     Dates: start: 20161128
  5. LANSOPRAZOLE OD [Concomitant]
     Active Substance: LANSOPRAZOLE
     Indication: PRODUCT USED FOR UNKNOWN INDICATION
     Route: 048
     Dates: start: 20161125, end: 20161127
  6. PHENOBAL [Concomitant]
     Active Substance: PHENOBARBITAL
     Route: 065
     Dates: start: 20161128
  7. SYMMETREL [Concomitant]
     Active Substance: AMANTADINE HYDROCHLORIDE
     Route: 065
     Dates: start: 20161128
  8. LANSOPRAZOLE OD [Concomitant]
     Active Substance: LANSOPRAZOLE
     Route: 065
     Dates: start: 20161128, end: 20161220
  9. GABAPEN [Concomitant]
     Active Substance: GABAPENTIN
     Indication: PRODUCT USED FOR UNKNOWN INDICATION
     Route: 048
     Dates: end: 20161127
  10. SYMMETREL [Concomitant]
     Active Substance: AMANTADINE HYDROCHLORIDE
     Indication: PRODUCT USED FOR UNKNOWN INDICATION
     Route: 048
     Dates: start: 20161110, end: 20161127
  11. ZONISAMIDE. [Suspect]
     Active Substance: ZONISAMIDE
     Indication: EPILEPSY
     Route: 048
     Dates: end: 20161127
  12. ALEVIATIN [Interacting]
     Active Substance: PHENYTOIN SODIUM
     Route: 065
     Dates: start: 20161220
  13. AMLODIPINE [Concomitant]
     Active Substance: AMLODIPINE BESYLATE
     Indication: PRODUCT USED FOR UNKNOWN INDICATION
     Route: 065
  14. GASMOTIN [Concomitant]
     Active Substance: MOSAPRIDE CITRATE
     Indication: PRODUCT USED FOR UNKNOWN INDICATION
     Route: 065
  15. OMEPRAZOLE. [Concomitant]
     Active Substance: OMEPRAZOLE
     Indication: PRODUCT USED FOR UNKNOWN INDICATION
     Route: 048
     Dates: end: 20161124
  16. ALEVIATIN [Interacting]
     Active Substance: PHENYTOIN SODIUM
     Route: 065
     Dates: start: 20161128, end: 20161207
  17. ALEVIATIN [Interacting]
     Active Substance: PHENYTOIN SODIUM
     Route: 065
     Dates: start: 20161208, end: 20161219

REACTIONS (3)
  - Drug interaction [Unknown]
  - Anticonvulsant drug level decreased [Unknown]
  - Seizure [Recovering/Resolving]

NARRATIVE: CASE EVENT DATE: 20161216
